FAERS Safety Report 4382600-0 (Version None)
Quarter: 2004Q2

REPORT INFORMATION
  Report Type: 
  Country: None (occurrence: None)
  Receive Date: 20040622
  Receipt Date: 20040614
  Transmission Date: 20050107
  Serious: Yes (Life-Threatening)
  Sender: FDA-Public Use
  Company Number: FR-BRISTOL-MYERS SQUIBB COMPANY-12618559

PATIENT
  Age: 74 Year
  Sex: Male

DRUGS (8)
  1. GLUCOPHAGE [Suspect]
     Indication: DIABETES MELLITUS
     Dosage: PRIOR USE IN 1989 AND MAY-2002.
     Route: 048
     Dates: start: 20040419, end: 20040504
  2. FLUDARA [Suspect]
     Indication: CHRONIC LYMPHOCYTIC LEUKAEMIA
     Route: 042
     Dates: start: 20040413, end: 20040418
  3. ALLOPURINOL TAB [Concomitant]
     Indication: CALCULUS URINARY
     Route: 048
  4. PARIET [Concomitant]
     Route: 048
  5. RENITEC [Concomitant]
     Indication: ESSENTIAL HYPERTENSION
     Route: 048
  6. COUMADIN [Concomitant]
     Route: 048
  7. SECTRAL [Concomitant]
  8. CORVASAL [Concomitant]

REACTIONS (1)
  - AGRANULOCYTOSIS [None]
